FAERS Safety Report 21744807 (Version 2)
Quarter: 2023Q1

REPORT INFORMATION
  Report Type: Report from Study
  Country: US (occurrence: US)
  Receive Date: 20221219
  Receipt Date: 20230116
  Transmission Date: 20230417
  Serious: No
  Sender: FDA-Public Use
  Company Number: US-BIOVITRUM-2022US14846

PATIENT
  Sex: Male

DRUGS (4)
  1. SYNAGIS [Suspect]
     Active Substance: PALIVIZUMAB
     Indication: Antiviral prophylaxis
     Dosage: 100MG/1ML
  2. SYNAGIS [Suspect]
     Active Substance: PALIVIZUMAB
  3. VITAMINS [Concomitant]
     Active Substance: VITAMINS
  4. ASCORBIC ACID\CYANOCOBALAMIN\FOLIC ACID\IRON [Concomitant]
     Active Substance: ASCORBIC ACID\CYANOCOBALAMIN\FOLIC ACID\IRON

REACTIONS (6)
  - Dyspnoea [Recovered/Resolved]
  - Influenza [Unknown]
  - Rhinorrhoea [Unknown]
  - Nasopharyngitis [Unknown]
  - Illness [Unknown]
  - Erythema [Recovered/Resolved]
